FAERS Safety Report 9456628 (Version 3)
Quarter: 2013Q3

REPORT INFORMATION
  Report Type: Spontaneous
  Country: BR (occurrence: BR)
  Receive Date: 20130813
  Receipt Date: 20130920
  Transmission Date: 20140515
  Serious: Yes (Other)
  Sender: FDA-Public Use
  Company Number: BR-CUBIST PHARMACEUTICALS, INC.-2013CBST000689

PATIENT
  Sex: 0

DRUGS (1)
  1. CUBICIN [Suspect]
     Indication: ENDOCARDITIS
     Dosage: 500 MG, UNK
     Route: 065

REACTIONS (2)
  - Myoclonus [Recovered/Resolved]
  - Tremor [Recovered/Resolved]
